FAERS Safety Report 7903206-X (Version None)
Quarter: 2011Q4

REPORT INFORMATION
  Report Type: 
  Country: None (occurrence: None)
  Receive Date: 20111107
  Receipt Date: 20111024
  Transmission Date: 20120403
  Serious: Yes (Other)
  Sender: FDA-Public Use
  Company Number: 1000025118

PATIENT
  Age: 24 Year
  Sex: Female

DRUGS (8)
  1. DOGMATYL (SULPIRIDE) [Concomitant]
  2. INDERAL [Concomitant]
  3. LEXAPRO [Suspect]
     Indication: DEPRESSION
     Dosage: 10 MG (10 MG, 1 IN 1 D), ORAL
     Route: 048
     Dates: start: 20111007, end: 20111020
  4. MEILAX  (ETHYL LOFLAZEPATE) [Concomitant]
  5. AMOBAN (ZOPICLONE) [Concomitant]
  6. AMOXAPINE [Concomitant]
  7. GASTER (OMEPRAZOLE) [Concomitant]
  8. METLIGINE (MIDODRINE HYDROCHLORIDE) [Concomitant]

REACTIONS (2)
  - LOSS OF CONSCIOUSNESS [None]
  - CONVULSION [None]
